FAERS Safety Report 9415198 (Version 1)
Quarter: 2013Q3

REPORT INFORMATION
  Report Type: Spontaneous
  Country: None (occurrence: US)
  Receive Date: 20130723
  Receipt Date: 20130723
  Transmission Date: 20140515
  Serious: Yes (Hospitalization)
  Sender: FDA-Public Use
  Company Number: US-ABBOTT-13P-163-1120638-00

PATIENT
  Age: 53 Year
  Sex: Female
  Weight: 72.64 kg

DRUGS (9)
  1. HUMIRA [Suspect]
     Indication: COLITIS ULCERATIVE
     Route: 058
     Dates: start: 201209
  2. ESTRACE [Concomitant]
     Indication: HORMONE REPLACEMENT THERAPY
  3. ATENOLOL [Concomitant]
     Indication: HYPERTENSION
  4. ASPIRIN [Concomitant]
     Indication: PRODUCT USED FOR UNKNOWN INDICATION
  5. ELAVIL [Concomitant]
     Indication: HYPERTENSION
  6. METHOTREXATE [Concomitant]
     Indication: PRODUCT USED FOR UNKNOWN INDICATION
  7. VITAMIN D3 [Concomitant]
     Indication: VITAMIN SUPPLEMENTATION
  8. BENTYL [Concomitant]
     Indication: COLITIS ULCERATIVE
  9. ZOFRAN [Concomitant]
     Indication: COLITIS ULCERATIVE

REACTIONS (11)
  - Loss of consciousness [Not Recovered/Not Resolved]
  - Paraesthesia [Not Recovered/Not Resolved]
  - Vision blurred [Recovered/Resolved]
  - Oropharyngeal pain [Recovered/Resolved]
  - Headache [Recovered/Resolved]
  - Dyspnoea [Recovered/Resolved]
  - Pulse abnormal [Recovered/Resolved]
  - Blood pressure immeasurable [Recovered/Resolved]
  - Colitis ulcerative [Not Recovered/Not Resolved]
  - Chest pain [Recovered/Resolved]
  - Pain [Recovered/Resolved]
